FAERS Safety Report 8383681-X (Version None)
Quarter: 2012Q2

REPORT INFORMATION
  Report Type: 
  Country: None (occurrence: None)
  Receive Date: 20120524
  Receipt Date: 20120406
  Transmission Date: 20120825
  Serious: Yes (Death, Other)
  Sender: FDA-Public Use
  Company Number: US-ROCHE-1019164

PATIENT
  Sex: Male
  Weight: 110 kg

DRUGS (15)
  1. TELAPREVIR [Suspect]
     Indication: HEPATITIS C
     Route: 048
  2. DIOVAN [Concomitant]
     Route: 048
  3. ERYTHROMYCIN [Concomitant]
     Route: 048
  4. PEGASYS [Suspect]
     Indication: HEPATITIS C
     Route: 058
     Dates: start: 20111021
  5. COPEGUS [Suspect]
     Indication: HEPATITIS C
     Route: 048
     Dates: start: 20111010
  6. ACETAMINOPHEN [Concomitant]
     Route: 048
  7. HYDROCORTISONE [Concomitant]
  8. GUAIFENESIN [Concomitant]
     Route: 048
  9. SPIRONOLACTONE [Concomitant]
     Route: 048
  10. THYMOL [Concomitant]
  11. METOPROLOL SUCCINATE [Concomitant]
     Route: 048
  12. FUROSEMIDE [Concomitant]
     Route: 048
  13. OMEPRAZOLE [Concomitant]
     Route: 048
  14. CLINDAMYCIN [Concomitant]
  15. CLOTRIMAZOLE [Concomitant]

REACTIONS (8)
  - RENAL FAILURE ACUTE [None]
  - MULTI-ORGAN FAILURE [None]
  - ACUTE RESPIRATORY DISTRESS SYNDROME [None]
  - SEPTIC SHOCK [None]
  - SEPSIS [None]
  - PNEUMONIA KLEBSIELLA [None]
  - HEPATIC FAILURE [None]
  - HEPATIC CIRRHOSIS [None]
